FAERS Safety Report 12806183 (Version 3)
Quarter: 2017Q1

REPORT INFORMATION
  Report Type: Spontaneous
  Country: AU (occurrence: AU)
  Receive Date: 20161004
  Receipt Date: 20170202
  Transmission Date: 20170428
  Serious: Yes (Life-Threatening, Hospitalization, Other)
  Sender: FDA-Public Use
  Company Number: PHHY2016AU124550

PATIENT
  Sex: Female

DRUGS (1)
  1. GILENYA [Suspect]
     Active Substance: FINGOLIMOD HYDROCHLORIDE
     Indication: RELAPSING-REMITTING MULTIPLE SCLEROSIS
     Dosage: UNK
     Route: 065
     Dates: start: 20121216, end: 20160905

REACTIONS (12)
  - Cerebrovascular accident [Unknown]
  - Pneumonia [Unknown]
  - Meningitis cryptococcal [Not Recovered/Not Resolved]
  - Loss of consciousness [Unknown]
  - Headache [Unknown]
  - Lower respiratory tract infection [Not Recovered/Not Resolved]
  - Confusional state [Unknown]
  - Immune reconstitution inflammatory syndrome [Recovering/Resolving]
  - Lymphopenia [Unknown]
  - Vasculitis [Unknown]
  - Disorientation [Unknown]
  - Candida infection [Unknown]
